FAERS Safety Report 5993822-7 (Version None)
Quarter: 2008Q4

REPORT INFORMATION
  Report Type: 
  Country: None (occurrence: None)
  Receive Date: 20081212
  Receipt Date: 20080912
  Transmission Date: 20090506
  Serious: No
  Sender: FDA-Public Use
  Company Number: PR-ABBOTT-08P-131-0443076-00

PATIENT
  Sex: Female
  Weight: 225 kg

DRUGS (8)
  1. HUMIRA [Suspect]
     Indication: RHEUMATOID ARTHRITIS
     Route: 058
     Dates: start: 20071201, end: 20080824
  2. NAPROXEN SODIUM [Concomitant]
     Indication: PAIN
     Route: 048
  3. NAPROXEN SODIUM [Concomitant]
     Indication: ARTHRITIS
  4. METHOTREXATE [Concomitant]
     Indication: RHEUMATOID ARTHRITIS
     Dosage: FOUR TABLETS WEEKLY
     Route: 048
  5. METHOTREXATE [Concomitant]
     Route: 048
  6. FOLIC ACID [Concomitant]
     Indication: ANAEMIA
     Route: 048
  7. INTROPLEX [Concomitant]
     Indication: ANAEMIA
     Route: 048
  8. HYDROCHLOROTHIAZIDE [Concomitant]
     Indication: DRUG USE FOR UNKNOWN INDICATION
     Route: 048

REACTIONS (5)
  - BLISTER [None]
  - EPISTAXIS [None]
  - MENORRHAGIA [None]
  - RASH GENERALISED [None]
  - SINUS CONGESTION [None]
